FAERS Safety Report 18468206 (Version 1)
Quarter: 2020Q4

REPORT INFORMATION
  Report Type: Spontaneous
  Country: US (occurrence: US)
  Receive Date: 20201104
  Receipt Date: 20201104
  Transmission Date: 20210114
  Serious: No
  Sender: FDA-Public Use
  Company Number: None

PATIENT
  Age: 55 Year
  Sex: Female
  Weight: 63 kg

DRUGS (1)
  1. VYZULTA [Suspect]
     Active Substance: LATANOPROSTENE BUNOD
     Indication: INTRAOCULAR PRESSURE INCREASED
     Dosage: ?          QUANTITY:1 DROP(S);?
     Route: 047

REACTIONS (7)
  - Discomfort [None]
  - Pharyngeal swelling [None]
  - Hypersensitivity [None]
  - Swelling of eyelid [None]
  - Swelling face [None]
  - Intraocular pressure increased [None]
  - Urticaria [None]

NARRATIVE: CASE EVENT DATE: 20201104
